FAERS Safety Report 17616009 (Version 1)
Quarter: 2020Q2

REPORT INFORMATION
  Report Type: Spontaneous
  Country: US (occurrence: US)
  Receive Date: 20200402
  Receipt Date: 20200402
  Transmission Date: 20200713
  Serious: Yes (Hospitalization)
  Sender: FDA-Public Use
  Company Number: None

PATIENT
  Sex: Female

DRUGS (9)
  1. COQ10 [Concomitant]
     Active Substance: UBIDECARENONE
  2. PROLIA [Suspect]
     Active Substance: DENOSUMAB
     Indication: SENILE OSTEOPOROSIS
     Dosage: ?          OTHER FREQUENCY:EVERY 6 MONTHS;?
     Route: 058
     Dates: start: 20170624
  3. VITAMIN B12 [Concomitant]
     Active Substance: CYANOCOBALAMIN
  4. BIOTIN [Concomitant]
     Active Substance: BIOTIN
  5. LEXAPRO [Concomitant]
     Active Substance: ESCITALOPRAM OXALATE
  6. B-3 X-H COMPLEX [Concomitant]
  7. METOPROLOL. [Concomitant]
     Active Substance: METOPROLOL
  8. OXYBUTIN [Concomitant]
     Active Substance: OXYBUTYNIN
  9. MAGNESIUM [Concomitant]
     Active Substance: MAGNESIUM

REACTIONS (3)
  - Impaired driving ability [None]
  - Movement disorder [None]
  - Hospitalisation [None]
